FAERS Safety Report 9253282 (Version 1)
Quarter: 2013Q2

REPORT INFORMATION
  Report Type: Spontaneous
  Country: AU (occurrence: AU)
  Receive Date: 20130424
  Receipt Date: 20130424
  Transmission Date: 20140414
  Serious: Yes (Hospitalization, Disabling)
  Sender: FDA-Public Use
  Company Number: AU-B.I. PHARMACEUTICALS,INC./RIDGEFIELD-2013-AU-00478AU

PATIENT
  Age: 7 Decade
  Sex: Male

DRUGS (3)
  1. PRADAXA [Suspect]
     Indication: ATRIAL FIBRILLATION
     Dosage: 300 MG
  2. NEOMERCAZOLE [Concomitant]
     Indication: HYPERTHYROIDISM
  3. PREDNISOLONE [Concomitant]
     Indication: HYPERTHYROIDISM

REACTIONS (8)
  - Peripheral embolism [Unknown]
  - Abasia [Unknown]
  - Foot amputation [Not Recovered/Not Resolved]
  - Pain in extremity [Unknown]
  - Pain in extremity [Unknown]
  - Arthralgia [Unknown]
  - Pulse absent [Unknown]
  - Drug ineffective [Unknown]
